FAERS Safety Report 4884998-3 (Version None)
Quarter: 2006Q1

REPORT INFORMATION
  Report Type: 
  Country: None (occurrence: None)
  Receive Date: 20060119
  Receipt Date: 20041009
  Transmission Date: 20060701
  Serious: Yes (Hospitalization, Disabling)
  Sender: FDA-Public Use
  Company Number: ES-MERCK-0410ESP00052

PATIENT
  Age: 52 Year
  Sex: Female

DRUGS (8)
  1. VIOXX [Suspect]
     Indication: SYNOVITIS
     Route: 048
  2. VIOXX [Suspect]
     Route: 048
     Dates: start: 20020901, end: 20041008
  3. VIOXX [Suspect]
     Route: 048
     Dates: start: 20020901, end: 20041008
  4. VIOXX [Suspect]
     Indication: PATELLA FRACTURE
     Route: 048
  5. VIOXX [Suspect]
     Route: 048
     Dates: start: 20020901, end: 20041008
  6. VIOXX [Suspect]
     Route: 048
     Dates: start: 20020901, end: 20041008
  7. FOSAMAX [Concomitant]
     Route: 048
     Dates: start: 20020901
  8. CALCIUM (UNSPECIFIED) AND VITAMIN D (UNSPECIFIED) [Concomitant]
     Route: 048
     Dates: start: 20020901

REACTIONS (10)
  - BACTERIURIA [None]
  - BLOOD LACTATE DEHYDROGENASE INCREASED [None]
  - CALCINOSIS [None]
  - CEREBRAL INFARCTION [None]
  - INTERVERTEBRAL DISC DISORDER [None]
  - OSTEOPOROSIS [None]
  - PATELLA FRACTURE [None]
  - PYURIA [None]
  - SUPRAVENTRICULAR TACHYCARDIA [None]
  - VENTRICULAR EXTRASYSTOLES [None]
